FAERS Safety Report 5602522-4 (Version None)
Quarter: 2008Q1

REPORT INFORMATION
  Report Type: 
  Country: None (occurrence: None)
  Receive Date: 20080125
  Receipt Date: 20080123
  Transmission Date: 20080703
  Serious: Yes (Other)
  Sender: FDA-Public Use
  Company Number: B0500386A

PATIENT
  Age: 38 Year
  Sex: Male

DRUGS (3)
  1. PAXIL [Suspect]
     Indication: DEPRESSION
     Route: 048
     Dates: start: 20071109
  2. HALCION [Concomitant]
     Route: 048
  3. SOLANAX [Concomitant]
     Route: 048

REACTIONS (1)
  - VISUAL ACUITY REDUCED [None]
